FAERS Safety Report 11363074 (Version 1)
Quarter: 2015Q3

REPORT INFORMATION
  Report Type: Report from Study
  Country: US (occurrence: US)
  Receive Date: 20150810
  Receipt Date: 20150810
  Transmission Date: 20151125
  Serious: Yes (Hospitalization, Other)
  Sender: FDA-Public Use
  Company Number: PHEH2014US024709

PATIENT
  Age: 11 Year
  Sex: Female
  Weight: 47.1 kg

DRUGS (3)
  1. TOBI PODHALER [Suspect]
     Active Substance: TOBRAMYCIN
     Indication: CYSTIC FIBROSIS
     Dosage: 4 DF (4 CAPSULES VIA PODHALER), BID
     Route: 055
     Dates: start: 20140804
  2. PULMOZYME [Concomitant]
     Active Substance: DORNASE ALFA
     Indication: PRODUCT USED FOR UNKNOWN INDICATION
     Route: 065
  3. TOBI PODHALER [Suspect]
     Active Substance: TOBRAMYCIN
     Dosage: 4 DF (28 MG), BID (28 DAYS ON AND 28 DAYS OFF)
     Route: 055
     Dates: start: 20140805

REACTIONS (8)
  - Constipation [Recovered/Resolved]
  - Pneumonia [Recovered/Resolved]
  - Bacterial disease carrier [Recovered/Resolved]
  - Cystic fibrosis [Recovered/Resolved]
  - Condition aggravated [Recovered/Resolved]
  - Abdominal pain [Unknown]
  - Pulmonary pain [Recovered/Resolved]
  - Eructation [Unknown]

NARRATIVE: CASE EVENT DATE: 20141207
